FAERS Safety Report 6728254-7 (Version None)
Quarter: 2010Q2

REPORT INFORMATION
  Report Type: 
  Country: None (occurrence: None)
  Receive Date: 20100517
  Receipt Date: 20100510
  Transmission Date: 20101027
  Serious: Yes (Other)
  Sender: FDA-Public Use
  Company Number: US-RB-008940-10

PATIENT
  Sex: Female

DRUGS (2)
  1. SUBUTEX [Suspect]
     Route: 064
     Dates: start: 20090701, end: 20100211
  2. SUBOXONE [Suspect]
     Route: 064
     Dates: start: 20090313, end: 20090701

REACTIONS (2)
  - DRUG EXPOSURE DURING PREGNANCY [None]
  - SMALL FOR DATES BABY [None]
